FAERS Safety Report 7593203-9 (Version None)
Quarter: 2011Q3

REPORT INFORMATION
  Report Type: 
  Country: None (occurrence: None)
  Receive Date: 20110706
  Receipt Date: 20100414
  Transmission Date: 20111222
  Serious: No
  Sender: FDA-Public Use
  Company Number: CA-BAYER-201020267NA

PATIENT
  Age: 47 Year
  Sex: Female

DRUGS (1)
  1. MIRENA [Suspect]
     Dosage: 20 ?G/D, CONT
     Route: 015
     Dates: start: 20091002

REACTIONS (4)
  - ALOPECIA [None]
  - MENORRHAGIA [None]
  - VAGINAL HAEMORRHAGE [None]
  - DEVICE DISLOCATION [None]
